FAERS Safety Report 5869087-3 (Version None)
Quarter: 2008Q3

REPORT INFORMATION
  Report Type: 
  Country: None (occurrence: None)
  Receive Date: 20080903
  Receipt Date: 20080827
  Transmission Date: 20090109
  Serious: Yes (Death)
  Sender: FDA-Public Use
  Company Number: FR-AVENTIS-200813156FR

PATIENT
  Age: 87 Year
  Sex: Female

DRUGS (7)
  1. LOVENOX [Suspect]
     Indication: ATRIAL FIBRILLATION
     Route: 058
     Dates: start: 20080226, end: 20080310
  2. TRIFLUCAN [Suspect]
     Route: 048
     Dates: start: 20080301, end: 20080310
  3. ZYPREXA [Suspect]
     Route: 048
     Dates: start: 20080304, end: 20080308
  4. SEROPRAM [Suspect]
     Route: 042
     Dates: start: 20080225, end: 20080304
  5. SEROPRAM [Suspect]
     Route: 042
     Dates: start: 20080305, end: 20080308
  6. RISPERDALORO [Suspect]
     Dosage: DOSE: 0.5 TO 1 MG DAILY
     Route: 048
     Dates: start: 20080225, end: 20080305
  7. ROCEPHIN [Suspect]
     Route: 042
     Dates: start: 20080225, end: 20080307

REACTIONS (4)
  - ALANINE AMINOTRANSFERASE INCREASED [None]
  - ASPARTATE AMINOTRANSFERASE INCREASED [None]
  - GAMMA-GLUTAMYLTRANSFERASE INCREASED [None]
  - HEPATITIS TOXIC [None]
